FAERS Safety Report 9392652 (Version 1)
Quarter: 2013Q3

REPORT INFORMATION
  Report Type: Spontaneous
  Country: US (occurrence: US)
  Receive Date: 20130710
  Receipt Date: 20130710
  Transmission Date: 20140515
  Serious: Yes (Hospitalization)
  Sender: FDA-Public Use
  Company Number: PHEH2013US014367

PATIENT
  Age: 47 Year
  Sex: Female

DRUGS (3)
  1. DIOVAN [Suspect]
  2. MAXZIDE [Interacting]
     Dosage: 5 MG, UNK
     Dates: start: 20110114
  3. LETAIRIS [Suspect]
     Indication: PULMONARY HYPERTENSION
     Dosage: 5 MG, UNK
     Dates: start: 20110114

REACTIONS (3)
  - Dehydration [Unknown]
  - Renal failure acute [Recovered/Resolved]
  - Drug interaction [Unknown]
